FAERS Safety Report 6765994-8 (Version None)
Quarter: 2010Q2

REPORT INFORMATION
  Report Type: 
  Country: None (occurrence: None)
  Receive Date: 20100611
  Receipt Date: 20100604
  Transmission Date: 20101027
  Serious: Yes (Hospitalization)
  Sender: FDA-Public Use
  Company Number: A0789319A

PATIENT
  Age: 56 Year
  Sex: Male
  Weight: 111.4 kg

DRUGS (3)
  1. AVANDIA [Suspect]
     Indication: DIABETES MELLITUS
     Dosage: 4U TWICE PER DAY
     Route: 048
     Dates: start: 20050625, end: 20060127
  2. AVANDAMET [Suspect]
     Indication: DIABETES MELLITUS
     Dates: start: 20040416, end: 20050625
  3. GLUCOTROL [Concomitant]

REACTIONS (5)
  - ACUTE CORONARY SYNDROME [None]
  - CARDIAC FAILURE CONGESTIVE [None]
  - CORONARY ARTERY DISEASE [None]
  - ISCHAEMIC CARDIOMYOPATHY [None]
  - MYOCARDIAL INFARCTION [None]
